FAERS Safety Report 25588585 (Version 1)
Quarter: 2025Q3

REPORT INFORMATION
  Report Type: Spontaneous
  Country: CN (occurrence: CN)
  Receive Date: 20250722
  Receipt Date: 20250722
  Transmission Date: 20251020
  Serious: Yes (Hospitalization)
  Sender: JOHNSON AND JOHNSON
  Company Number: CN-JNJFOC-20250721449

PATIENT
  Age: 68 Year
  Sex: Male
  Weight: 59 kg

DRUGS (2)
  1. TOLODODEKIN ALFA [Suspect]
     Active Substance: TOLODODEKIN ALFA
     Indication: Neoplasm malignant
     Route: 041
     Dates: start: 20250703, end: 20250703
  2. BORTEZOMIB [Suspect]
     Active Substance: BORTEZOMIB
     Indication: Neoplasm malignant
     Route: 041
     Dates: start: 20250706, end: 20250706

REACTIONS (1)
  - Myelosuppression [Not Recovered/Not Resolved]

NARRATIVE: CASE EVENT DATE: 20250707
